FAERS Safety Report 8810806 (Version 1)
Quarter: 2012Q4

REPORT INFORMATION
  Report Type: Spontaneous
  Country: US (occurrence: None)
  Receive Date: 20120924
  Receipt Date: 20120924
  Transmission Date: 20130627
  Serious: Yes (Hospitalization)
  Sender: FDA-Public Use
  Company Number: None

PATIENT
  Age: 24 Year
  Sex: Male
  Weight: 97 kg

DRUGS (3)
  1. ZOSYN [Suspect]
     Indication: BACTERIURIA
     Route: 040
     Dates: start: 20120906, end: 20120911
  2. ZOSYN [Suspect]
     Route: 040
     Dates: start: 20120906, end: 20120911
  3. VANCOMYCIN [Suspect]
     Route: 040
     Dates: start: 20120906, end: 20120910

REACTIONS (1)
  - Renal impairment [None]
